FAERS Safety Report 17660528 (Version 1)
Quarter: 2020Q2

REPORT INFORMATION
  Report Type: Spontaneous
  Country: US (occurrence: US)
  Receive Date: 20200410
  Receipt Date: 20200410
  Transmission Date: 20200713
  Serious: No
  Sender: FDA-Public Use
  Company Number: None

PATIENT
  Age: 49 Year
  Sex: Male

DRUGS (1)
  1. GLATOPA [Suspect]
     Active Substance: GLATIRAMER ACETATE
     Route: 058
     Dates: start: 202003

REACTIONS (2)
  - Pruritus [None]
  - Injection site swelling [None]

NARRATIVE: CASE EVENT DATE: 20200410
